FAERS Safety Report 6462099-0 (Version None)
Quarter: 2009Q4

REPORT INFORMATION
  Report Type: 
  Country: None (occurrence: None)
  Receive Date: 20091130
  Receipt Date: 20091123
  Transmission Date: 20100525
  Serious: Yes (Other)
  Sender: FDA-Public Use
  Company Number: CHPA2009GB22460

PATIENT
  Sex: Female

DRUGS (1)
  1. LAMISIL CREAM [Suspect]
     Indication: TINEA PEDIS
     Dosage: UNK, UNK
     Route: 061
     Dates: start: 20091107

REACTIONS (7)
  - APPLICATION SITE ERYTHEMA [None]
  - APPLICATION SITE SWELLING [None]
  - AURICULAR SWELLING [None]
  - EYE SWELLING [None]
  - INSOMNIA [None]
  - RASH GENERALISED [None]
  - SWELLING FACE [None]
